FAERS Safety Report 5708036-5 (Version None)
Quarter: 2008Q2

REPORT INFORMATION
  Report Type: 
  Country: None (occurrence: None)
  Receive Date: 20080417
  Receipt Date: 20080404
  Transmission Date: 20081010
  Serious: Yes (Hospitalization)
  Sender: FDA-Public Use
  Company Number: US-AMGEN-QUU272979

PATIENT
  Sex: Female
  Weight: 50.8 kg

DRUGS (2)
  1. ENBREL [Suspect]
     Indication: ANKYLOSING SPONDYLITIS
     Route: 058
     Dates: start: 20040901, end: 20070501
  2. VITAMIN TAB [Concomitant]
     Route: 048
     Dates: start: 20070601

REACTIONS (3)
  - ANTEPARTUM HAEMORRHAGE [None]
  - HAEMOGLOBIN DECREASED [None]
  - PLACENTAL DISORDER [None]
